FAERS Safety Report 23442433 (Version 1)
Quarter: 2024Q1

REPORT INFORMATION
  Report Type: Other
  Country: CA (occurrence: CA)
  Receive Date: 20240125
  Receipt Date: 20240125
  Transmission Date: 20240410
  Serious: Yes (Hospitalization)
  Sender: FDA-Public Use
  Company Number: CA-APOTEX-2024AP001225

PATIENT
  Sex: Male

DRUGS (12)
  1. ARIPIPRAZOLE [Suspect]
     Active Substance: ARIPIPRAZOLE
     Indication: Schizoaffective disorder bipolar type
     Dosage: 400 MILLIGRAM
     Route: 065
  2. CLOZAPINE [Suspect]
     Active Substance: CLOZAPINE
     Indication: Schizoaffective disorder bipolar type
     Dosage: 300 MILLIGRAM, QD
     Route: 065
  3. FLUPHENAZINE [Suspect]
     Active Substance: FLUPHENAZINE
     Indication: Schizoaffective disorder bipolar type
     Dosage: 125 MILLIGRAM, QD
     Route: 065
  4. HALOPERIDOL [Suspect]
     Active Substance: HALOPERIDOL
     Indication: Schizoaffective disorder bipolar type
     Dosage: 10 MILLIGRAM, QD
     Route: 065
  5. LOXAPINE [Suspect]
     Active Substance: LOXAPINE
     Indication: Schizoaffective disorder bipolar type
     Dosage: 25 MILLIGRAM, QD
     Route: 065
  6. OLANZAPINE [Suspect]
     Active Substance: OLANZAPINE
     Indication: Schizoaffective disorder bipolar type
     Dosage: 15 MILLIGRAM, QD
     Route: 065
  7. QUETIAPINE [Suspect]
     Active Substance: QUETIAPINE
     Indication: Schizoaffective disorder bipolar type
     Dosage: 700 MILLIGRAM, QD
     Route: 065
  8. RISPERIDONE [Suspect]
     Active Substance: RISPERIDONE
     Indication: Schizoaffective disorder bipolar type
     Dosage: 50 MILLIGRAM
     Route: 065
  9. RISPERIDONE [Suspect]
     Active Substance: RISPERIDONE
     Dosage: 2 MILLIGRAM, QD
     Route: 048
  10. TRIFLUOPERAZINE [Suspect]
     Active Substance: TRIFLUOPERAZINE HYDROCHLORIDE
     Indication: Schizoaffective disorder bipolar type
     Dosage: 50 MILLIGRAM, QD
     Route: 065
  11. DIVALPROEX SODIUM [Suspect]
     Active Substance: DIVALPROEX SODIUM
     Indication: Schizoaffective disorder bipolar type
     Dosage: 1500 MILLIGRAM, QD
     Route: 065
  12. PALIPERIDONE [Suspect]
     Active Substance: PALIPERIDONE
     Indication: Schizoaffective disorder bipolar type
     Dosage: 150 MILLIGRAM
     Route: 065

REACTIONS (2)
  - Sedation [Unknown]
  - Drug ineffective [Unknown]
